FAERS Safety Report 6733741-1 (Version None)
Quarter: 2010Q2

REPORT INFORMATION
  Report Type: 
  Country: None (occurrence: None)
  Receive Date: 20100520
  Receipt Date: 20100510
  Transmission Date: 20101027
  Serious: Yes (Hospitalization, Other)
  Sender: FDA-Public Use
  Company Number: PHHY2010JP21291

PATIENT
  Age: 36 Year
  Sex: Female

DRUGS (8)
  1. SANDIMMUNE [Suspect]
     Indication: ALLOGENIC BONE MARROW TRANSPLANTATION THERAPY
     Dosage: 30 MG DAILY
     Dates: start: 20060927
  2. SANDIMMUNE [Suspect]
     Dosage: 30 MG
     Route: 041
  3. SANDIMMUNE [Suspect]
     Dosage: 60 MG
     Route: 041
     Dates: end: 20061027
  4. NEORAL [Suspect]
     Indication: ALLOGENIC BONE MARROW TRANSPLANTATION THERAPY
     Dosage: 140 MG/DAY
     Dates: start: 20061122
  5. METHOTREXATE [Suspect]
     Indication: ALLOGENIC BONE MARROW TRANSPLANTATION THERAPY
  6. METHOTREXATE [Suspect]
     Indication: PROPHYLAXIS AGAINST GRAFT VERSUS HOST DISEASE
  7. CYCLOPHOSPHAMIDE [Concomitant]
     Indication: ALLOGENIC BONE MARROW TRANSPLANTATION THERAPY
  8. IRRADIATION [Concomitant]
     Indication: ALLOGENIC BONE MARROW TRANSPLANTATION THERAPY

REACTIONS (19)
  - ACUTE GRAFT VERSUS HOST DISEASE IN LIVER [None]
  - ADENOVIRUS INFECTION [None]
  - BILE DUCT OBSTRUCTION [None]
  - BILE DUCT STENOSIS [None]
  - BILE DUCT STENT INSERTION [None]
  - BILIARY DRAINAGE [None]
  - BILIARY TRACT DILATION PROCEDURE [None]
  - BILIARY TRACT DISORDER [None]
  - BILIRUBIN CONJUGATED INCREASED [None]
  - BLOOD BILIRUBIN INCREASED [None]
  - CAST REMOVAL [None]
  - CHRONIC GRAFT VERSUS HOST DISEASE [None]
  - DILATATION INTRAHEPATIC DUCT ACQUIRED [None]
  - ENTEROCOLITIS VIRAL [None]
  - HEPATIC ENZYME INCREASED [None]
  - JAUNDICE [None]
  - MULTI-ORGAN FAILURE [None]
  - PNEUMONIA [None]
  - THROMBOTIC MICROANGIOPATHY [None]
